FAERS Safety Report 6274203-8 (Version None)
Quarter: 2009Q3

REPORT INFORMATION
  Report Type: 
  Country: None (occurrence: None)
  Receive Date: 20090720
  Receipt Date: 20090717
  Transmission Date: 20100115
  Serious: Yes (Other)
  Sender: FDA-Public Use
  Company Number: US-PFIZER INC-2009223146

PATIENT
  Sex: Female
  Weight: 73.5 kg

DRUGS (3)
  1. DIFLUCAN [Suspect]
     Indication: ORAL INFECTION
     Dosage: 100 MG, 1X/DAY
     Dates: start: 20090501, end: 20090501
  2. CYMBALTA [Concomitant]
  3. TYLENOL W/ CODEINE NO. 3 [Concomitant]

REACTIONS (4)
  - ABDOMINAL DISCOMFORT [None]
  - DYSPHAGIA [None]
  - MALAISE [None]
  - WEIGHT DECREASED [None]
